FAERS Safety Report 8538079-8 (Version None)
Quarter: 2012Q3

REPORT INFORMATION
  Report Type: 
  Country: None (occurrence: None)
  Receive Date: 20120725
  Receipt Date: 20120719
  Transmission Date: 20120928
  Serious: Yes (Hospitalization, Other)
  Sender: FDA-Public Use
  Company Number: US-PFIZER INC-2004061434

PATIENT
  Age: 61 Year
  Sex: Male

DRUGS (1)
  1. DILANTIN [Suspect]
     Dosage: 100 MG, 3X/DAY
     Route: 048
     Dates: start: 19650101, end: 20030101

REACTIONS (6)
  - MYOCARDIAL INFARCTION [None]
  - RASH [None]
  - EARLY RETIREMENT [None]
  - LUPUS-LIKE SYNDROME [None]
  - CEREBROVASCULAR ACCIDENT [None]
  - ARTHRALGIA [None]
